FAERS Safety Report 11508838 (Version 1)
Quarter: 2015Q3

REPORT INFORMATION
  Report Type: Spontaneous
  Country: US (occurrence: US)
  Receive Date: 20150903
  Receipt Date: 20150903
  Transmission Date: 20151125
  Serious: No
  Sender: FDA-Public Use
  Company Number: US-ELI_LILLY_AND_COMPANY-US201002000761

PATIENT
  Sex: Female

DRUGS (9)
  1. HUMALOG [Suspect]
     Active Substance: INSULIN LISPRO
     Indication: DIABETES MELLITUS
     Dosage: UNK, 3/D
     Dates: start: 200704
  2. PRANDIN [Concomitant]
     Active Substance: REPAGLINIDE
  3. LOTREL [Concomitant]
     Active Substance: AMLODIPINE BESYLATE\BENAZEPRIL HYDROCHLORIDE
  4. LEVOXYL [Concomitant]
     Active Substance: LEVOTHYROXINE SODIUM
  5. TRICOR [Concomitant]
     Active Substance: FENOFIBRATE
  6. ZETIA [Concomitant]
     Active Substance: EZETIMIBE
  7. NIACIN. [Concomitant]
     Active Substance: NIACIN
  8. LANTUS [Concomitant]
     Active Substance: INSULIN GLARGINE
     Dosage: UNK, EACH EVENING
  9. GABAPENTIN. [Concomitant]
     Active Substance: GABAPENTIN
     Indication: FEELING HOT

REACTIONS (5)
  - Foreign body in eye [Not Recovered/Not Resolved]
  - Hypoaesthesia [Not Recovered/Not Resolved]
  - Adverse drug reaction [Unknown]
  - Diabetic eye disease [Not Recovered/Not Resolved]
  - Paraesthesia [Not Recovered/Not Resolved]

NARRATIVE: CASE EVENT DATE: 2008
